FAERS Safety Report 5554558-X (Version None)
Quarter: 2007Q4

REPORT INFORMATION
  Report Type: 
  Country: None (occurrence: None)
  Receive Date: 20071213
  Receipt Date: 20070729
  Transmission Date: 20080405
  Serious: No
  Sender: FDA-Public Use
  Company Number: US-AMGEN-KDL236576

PATIENT
  Sex: Female

DRUGS (1)
  1. ENBREL [Suspect]
     Indication: PSORIASIS
     Dates: end: 20070707

REACTIONS (3)
  - ORAL FUNGAL INFECTION [None]
  - PHARYNGOLARYNGEAL PAIN [None]
  - PSORIASIS [None]
